FAERS Safety Report 8586762-0 (Version None)
Quarter: 2012Q3

REPORT INFORMATION
  Report Type: 
  Country: None (occurrence: None)
  Receive Date: 20120810
  Receipt Date: 20120731
  Transmission Date: 20120928
  Serious: No
  Sender: FDA-Public Use
  Company Number: US-ASTRAZENECA-2012SE13506

PATIENT
  Age: 58 Year
  Sex: Male
  Weight: 123.4 kg

DRUGS (5)
  1. SYMBICORT [Suspect]
     Indication: CHRONIC OBSTRUCTIVE PULMONARY DISEASE
     Dosage: 160/4.5, TWO TIMES A DAY
     Route: 055
  2. CRESTOR [Suspect]
     Indication: BLOOD CHOLESTEROL ABNORMAL
     Route: 048
  3. TRIAMTERENE 37.5 HCTZ [Concomitant]
  4. AMIODARONE HCL [Concomitant]
     Indication: CARDIAC DISORDER
  5. PRADAXA [Concomitant]
     Indication: CARDIAC DISORDER
     Route: 048

REACTIONS (7)
  - CARDIAC DISORDER [None]
  - JOINT RANGE OF MOTION DECREASED [None]
  - CHRONIC OBSTRUCTIVE PULMONARY DISEASE [None]
  - ARTHRITIS [None]
  - CARDIAC FAILURE CONGESTIVE [None]
  - ARRHYTHMIA [None]
  - MUSCULOSKELETAL PAIN [None]
